FAERS Safety Report 19699830 (Version 2)
Quarter: 2021Q3

REPORT INFORMATION
  Report Type: Report from Study
  Country: US (occurrence: US)
  Receive Date: 20210814
  Receipt Date: 20210929
  Transmission Date: 20211014
  Serious: Yes (Other)
  Sender: FDA-Public Use
  Company Number: NVSC2021US180154

PATIENT
  Age: 60 Year
  Sex: Male

DRUGS (6)
  1. NITROGLYCERIN. [Concomitant]
     Active Substance: NITROGLYCERIN
     Indication: PRODUCT USED FOR UNKNOWN INDICATION
     Dosage: UNK
     Route: 065
  2. ENTRESTO [Suspect]
     Active Substance: SACUBITRIL\VALSARTAN
     Dosage: 50 MG, BID (24/26 MG)
     Route: 048
  3. QUERCETIN [Concomitant]
     Active Substance: QUERCETIN
     Indication: COVID-19 PROPHYLAXIS
     Dosage: UNK
     Route: 065
     Dates: start: 202002
  4. CARVEDILOL. [Concomitant]
     Active Substance: CARVEDILOL
     Indication: PRODUCT USED FOR UNKNOWN INDICATION
     Dosage: UNK
     Route: 065
  5. ZINC. [Concomitant]
     Active Substance: ZINC
     Indication: COVID-19 PROPHYLAXIS
     Dosage: UNK
     Route: 065
     Dates: start: 202002
  6. ENTRESTO [Suspect]
     Active Substance: SACUBITRIL\VALSARTAN
     Indication: CARDIAC FAILURE
     Dosage: 50 MG, BID  (24/26 MG)
     Route: 048
     Dates: start: 2017

REACTIONS (3)
  - Microvascular coronary artery disease [Not Recovered/Not Resolved]
  - Chest pain [Unknown]
  - Myocardial infarction [Unknown]

NARRATIVE: CASE EVENT DATE: 2018
